FAERS Safety Report 20704676 (Version 1)
Quarter: 2022Q2

REPORT INFORMATION
  Report Type: Spontaneous
  Country: US (occurrence: None)
  Receive Date: 20220412
  Receipt Date: 20220412
  Transmission Date: 20220721
  Serious: Yes (Disabling)
  Sender: FDA-Public Use
  Company Number: None

PATIENT
  Age: 53 Year
  Sex: Female
  Weight: 62.55 kg

DRUGS (7)
  1. QULIPTA [Suspect]
     Active Substance: ATOGEPANT
     Indication: Migraine prophylaxis
  2. LEVOTHYROXINE [Concomitant]
  3. CYTOMEL [Concomitant]
  4. CALCIUM [Concomitant]
  5. MAGNESIUM [Concomitant]
  6. VITAMINS [Concomitant]
     Active Substance: VITAMINS
  7. COLLAGEN [Concomitant]
     Active Substance: COLLAGEN

REACTIONS (8)
  - Insomnia [None]
  - Visual acuity reduced [None]
  - Arthralgia [None]
  - Arthralgia [None]
  - Arthralgia [None]
  - Pain in extremity [None]
  - Arthralgia [None]
  - Gait disturbance [None]

NARRATIVE: CASE EVENT DATE: 20220411
